FAERS Safety Report 9966946 (Version 3)
Quarter: 2014Q2

REPORT INFORMATION
  Report Type: Spontaneous
  Country: US (occurrence: US)
  Receive Date: 20140305
  Receipt Date: 20140506
  Transmission Date: 20141212
  Serious: Yes (Other)
  Sender: FDA-Public Use
  Company Number: US-JNJFOC-20070105595

PATIENT
  Age: 60 Year
  Sex: Male
  Weight: 79.38 kg

DRUGS (3)
  1. ULTRAM ER [Suspect]
     Indication: BACK PAIN
     Route: 048
     Dates: start: 200612, end: 200612
  2. LITHIUM [Interacting]
     Indication: BIPOLAR DISORDER
     Route: 065
  3. ZOLOFT [Concomitant]
     Indication: DRUG THERAPY
     Route: 048

REACTIONS (2)
  - Tremor [Recovered/Resolved]
  - Drug interaction [Recovered/Resolved]
